FAERS Safety Report 9404283 (Version 1)
Quarter: 2013Q3

REPORT INFORMATION
  Report Type: Spontaneous
  Country: US (occurrence: None)
  Receive Date: 20130711
  Receipt Date: 20130711
  Transmission Date: 20140515
  Serious: Yes (Other)
  Sender: FDA-Public Use
  Company Number: USA/USA/13/0030386

PATIENT
  Sex: Male

DRUGS (12)
  1. AUGMENTIN [Suspect]
     Indication: PRODUCT USED FOR UNKNOWN INDICATION
  2. VANCOMYCIN (VANCOMYCIN) [Concomitant]
  3. BACTRIM DS (BACTRIM) [Concomitant]
  4. CYMBALTA (DULOXETINE HYDROCHLORIDE) [Concomitant]
  5. HUMALOG MIX (HUMALOG MIX) [Concomitant]
  6. LANTUS (INSULIN GLARGINE) [Concomitant]
  7. LISINORPIL (LISINOPRIL) [Concomitant]
  8. METFORMIN (METFORMIN) [Concomitant]
  9. NEURONTIN (GABAPENTIN) [Concomitant]
  10. PLETAL (CILOSTAZOL) [Concomitant]
  11. TRENTAL (PENTOXIFYLLINE) [Concomitant]
  12. UREA (UREA) [Concomitant]

REACTIONS (1)
  - Renal failure [None]
